FAERS Safety Report 4876287-8 (Version None)
Quarter: 2005Q4

REPORT INFORMATION
  Report Type: 
  Country: None (occurrence: None)
  Receive Date: 20051206
  Receipt Date: 20051026
  Transmission Date: 20060501
  Serious: No
  Sender: FDA-Public Use
  Company Number: USA0510111913

PATIENT
  Age: 36 Year
  Sex: Male

DRUGS (3)
  1. CYMBALTA [Suspect]
     Indication: DEPRESSION
     Dosage: 30 MG
     Dates: start: 20051021, end: 20051026
  2. HEART [Concomitant]
  3. CHOLESTEROL [Concomitant]

REACTIONS (8)
  - ANXIETY [None]
  - COLD SWEAT [None]
  - ENERGY INCREASED [None]
  - HEADACHE [None]
  - MALAISE [None]
  - NAUSEA [None]
  - PALPITATIONS [None]
  - THINKING ABNORMAL [None]
